FAERS Safety Report 7003054-1 (Version None)
Quarter: 2010Q3

REPORT INFORMATION
  Report Type: 
  Country: None (occurrence: None)
  Receive Date: 20100920
  Receipt Date: 20100330
  Transmission Date: 20110219
  Serious: No
  Sender: FDA-Public Use
  Company Number: US-ASTRAZENECA-2010SE13918

PATIENT
  Age: 31 Year
  Sex: Male
  Weight: 63.5 kg

DRUGS (5)
  1. SEROQUEL [Suspect]
     Indication: BIPOLAR DISORDER
     Route: 048
     Dates: end: 20100201
  2. SEROQUEL [Suspect]
     Route: 048
     Dates: start: 20100201, end: 20100201
  3. SEROQUEL [Suspect]
     Route: 048
     Dates: start: 20100201
  4. LAMICTAL [Concomitant]
  5. LITHIUM [Concomitant]

REACTIONS (3)
  - FATIGUE [None]
  - FEELING ABNORMAL [None]
  - SEDATION [None]
